FAERS Safety Report 21963151 (Version 1)
Quarter: 2023Q1

REPORT INFORMATION
  Report Type: Spontaneous
  Country: US (occurrence: None)
  Receive Date: 20230205
  Receipt Date: 20230205
  Transmission Date: 20230418
  Serious: Yes (Other)
  Sender: FDA-Public Use
  Company Number: None

PATIENT
  Age: 52 Year
  Sex: Female
  Weight: 51.3 kg

DRUGS (4)
  1. QULIPTA [Suspect]
     Active Substance: ATOGEPANT
     Indication: Migraine
     Dosage: FREQUENCY : DAILY;?
     Route: 048
  2. MELOXICAM [Concomitant]
     Active Substance: MELOXICAM
  3. VITAMIN D3 [Concomitant]
     Active Substance: CHOLECALCIFEROL
  4. REPHRESH PRO B [Concomitant]

REACTIONS (3)
  - Depression suicidal [None]
  - Self-injurious ideation [None]
  - Therapy cessation [None]

NARRATIVE: CASE EVENT DATE: 20221001
